FAERS Safety Report 5994519-X (Version None)
Quarter: 2008Q4

REPORT INFORMATION
  Report Type: 
  Country: None (occurrence: None)
  Receive Date: 20081212
  Receipt Date: 20081208
  Transmission Date: 20090506
  Serious: Yes (Other)
  Sender: FDA-Public Use
  Company Number: US-MERCK-0812USA01970

PATIENT
  Age: 64 Year
  Sex: Female
  Weight: 50 kg

DRUGS (17)
  1. ZOCOR [Suspect]
     Indication: HYPERCHOLESTEROLAEMIA
     Route: 048
  2. KETEK [Suspect]
     Indication: CHRONIC SINUSITIS
     Route: 065
     Dates: start: 20050405, end: 20050413
  3. PREDNISONE [Suspect]
     Route: 048
  4. PREDNISONE [Suspect]
     Route: 048
  5. MOTRIN [Suspect]
     Route: 065
  6. AUGMENTIN '125' [Suspect]
     Indication: SINUSITIS
     Route: 065
     Dates: start: 20050126, end: 20050206
  7. ZITHROMAX [Suspect]
     Route: 065
  8. HERBS (UNSPECIFIED) [Suspect]
     Indication: FIBROCYSTIC BREAST DISEASE
     Route: 065
  9. FOSAMAX [Concomitant]
     Route: 065
  10. VITAMINS (UNSPECIFIED) [Concomitant]
     Route: 065
  11. UBIDECARENONE [Concomitant]
     Route: 065
  12. EVENING PRIMROSE OIL [Concomitant]
     Route: 065
  13. VITAMIN E ACETATE [Concomitant]
     Route: 065
  14. MUCINEX [Concomitant]
     Route: 065
  15. LEVAQUIN [Concomitant]
     Route: 065
  16. LASIX [Concomitant]
     Route: 065
  17. ATROVENT [Concomitant]
     Route: 065

REACTIONS (17)
  - ANOREXIA [None]
  - BLOOD ALBUMIN DECREASED [None]
  - BLOOD BILIRUBIN INCREASED [None]
  - C-REACTIVE PROTEIN INCREASED [None]
  - CHOLESTATIC LIVER INJURY [None]
  - FATIGUE [None]
  - HAEMATURIA [None]
  - HERPES ZOSTER [None]
  - JAUNDICE [None]
  - LIVER FUNCTION TEST ABNORMAL [None]
  - ORAL CANDIDIASIS [None]
  - PAIN [None]
  - PROTEINURIA [None]
  - PYREXIA [None]
  - RASH [None]
  - URINE ANALYSIS ABNORMAL [None]
  - WEIGHT DECREASED [None]
